FAERS Safety Report 13753998 (Version 1)
Quarter: 2017Q3

REPORT INFORMATION
  Report Type: Spontaneous
  Country: US (occurrence: US)
  Receive Date: 20170714
  Receipt Date: 20170714
  Transmission Date: 20171127
  Serious: Yes (Other)
  Sender: FDA-Public Use
  Company Number: None

PATIENT
  Age: 43 Year
  Sex: Female
  Weight: 164.7 kg

DRUGS (11)
  1. ARIPRIZOLE [Concomitant]
  2. ATORVISTATIN [Concomitant]
  3. PROZAC [Concomitant]
     Active Substance: FLUOXETINE HYDROCHLORIDE
  4. ARIPRIZOLE [Suspect]
     Active Substance: ARIPIPRAZOLE
     Indication: BIPOLAR DISORDER
     Dosage: ?          OTHER STRENGTH:MG;QUANTITY:1 TABLET(S);?
     Route: 048
  5. C-PAP [Concomitant]
  6. METFORMIN [Concomitant]
     Active Substance: METFORMIN HYDROCHLORIDE
  7. LAMICTAL [Concomitant]
     Active Substance: LAMOTRIGINE
  8. FENOFIBRATE. [Concomitant]
     Active Substance: FENOFIBRATE
  9. OMEPRIZOLE [Concomitant]
  10. LEVOTHIROXINE [Concomitant]
  11. NUVIGIL [Concomitant]
     Active Substance: ARMODAFINIL

REACTIONS (4)
  - Compulsive shopping [None]
  - Weight increased [None]
  - Binge eating [None]
  - Gambling disorder [None]

NARRATIVE: CASE EVENT DATE: 20170706
